FAERS Safety Report 5020818-4 (Version None)
Quarter: 2006Q2

REPORT INFORMATION
  Report Type: 
  Country: None (occurrence: None)
  Receive Date: 20060608
  Receipt Date: 20051005
  Transmission Date: 20061013
  Serious: Yes (Other)
  Sender: FDA-Public Use
  Company Number: US-BRISTOL-MYERS SQUIBB COMPANY-13136007

PATIENT
  Sex: Female

DRUGS (10)
  1. ESTRACE [Suspect]
     Indication: HORMONE THERAPY
  2. PREMARIN [Suspect]
     Indication: HORMONE THERAPY
  3. PROVERA [Suspect]
     Indication: HORMONE THERAPY
  4. ESTRADERM [Suspect]
     Indication: HORMONE THERAPY
  5. CLIMARA [Suspect]
     Indication: HORMONE THERAPY
  6. OGEN [Suspect]
     Indication: HORMONE THERAPY
  7. PREMPRO [Suspect]
     Indication: HORMONE THERAPY
  8. PREMPHASE 14/14 [Suspect]
     Indication: HORMONE THERAPY
  9. CYCRIN [Suspect]
     Indication: HORMONE THERAPY
  10. PROMETRIUM [Suspect]
     Indication: HORMONE THERAPY

REACTIONS (1)
  - BREAST CANCER [None]
